FAERS Safety Report 25440143 (Version 3)
Quarter: 2025Q3

REPORT INFORMATION
  Report Type: Spontaneous
  Country: US (occurrence: US)
  Receive Date: 20250616
  Receipt Date: 20250829
  Transmission Date: 20251020
  Serious: No
  Sender: NOVARTIS
  Company Number: US-002147023-NVSC2025US093815

PATIENT

DRUGS (1)
  1. KESIMPTA [Suspect]
     Active Substance: OFATUMUMAB
     Indication: Relapsing multiple sclerosis
     Route: 058

REACTIONS (3)
  - Injection related reaction [Recovered/Resolved]
  - Fatigue [Unknown]
  - Influenza like illness [Recovered/Resolved]
